FAERS Safety Report 9936873 (Version 1)
Quarter: 2014Q1

REPORT INFORMATION
  Report Type: Spontaneous
  Country: US (occurrence: None)
  Receive Date: 20140115
  Receipt Date: 20140115
  Transmission Date: 20141002
  Serious: Yes (Death)
  Sender: FDA-Public Use
  Company Number: 2013AP008561

PATIENT
  Age: 50 Year
  Sex: Male

DRUGS (4)
  1. LAMOTRIGINE TABLETS [Suspect]
     Dosage: ; PO
     Route: 048
  2. CLONAZEPAM [Suspect]
     Dosage: ; PO
     Route: 048
  3. CITALOPRAM [Suspect]
     Dosage: ; PO
     Route: 048
  4. COCAINE [Suspect]
     Dosage: ; PO
     Route: 048

REACTIONS (1)
  - Completed suicide [None]
